FAERS Safety Report 16475022 (Version 1)
Quarter: 2019Q2

REPORT INFORMATION
  Report Type: Spontaneous
  Country: US (occurrence: US)
  Receive Date: 20190516
  Receipt Date: 20190516
  Transmission Date: 20190711
  Serious: Yes (Hospitalization)
  Sender: FDA-Public Use
  Company Number: None

PATIENT
  Age: 45 Year
  Sex: Female
  Weight: 54 kg

DRUGS (1)
  1. OXALIPLATIN. [Suspect]
     Active Substance: OXALIPLATIN
     Indication: NEUROENDOCRINE TUMOUR
     Dosage: ?          OTHER FREQUENCY:UNKNOWN;?
     Route: 042
     Dates: start: 20190110, end: 20190423

REACTIONS (6)
  - Lethargy [None]
  - Nausea [None]
  - Vomiting [None]
  - Hypotension [None]
  - Angina pectoris [None]
  - Infusion related reaction [None]

NARRATIVE: CASE EVENT DATE: 20190423
